FAERS Safety Report 24308815 (Version 1)
Quarter: 2024Q3

REPORT INFORMATION
  Report Type: Spontaneous
  Country: IT (occurrence: IT)
  Receive Date: 20240911
  Receipt Date: 20240911
  Transmission Date: 20241016
  Serious: Yes (Other)
  Sender: CIPLA
  Company Number: IT-EMA-DD-20190719-jain_h1-141654

PATIENT

DRUGS (49)
  1. EMTRICITABINE\TENOFOVIR [Suspect]
     Active Substance: EMTRICITABINE\TENOFOVIR
     Indication: Pneumocystis jirovecii infection
     Dosage: UNK
     Route: 065
  2. EMTRICITABINE\TENOFOVIR [Suspect]
     Active Substance: EMTRICITABINE\TENOFOVIR
     Indication: Acquired immunodeficiency syndrome
  3. EMTRICITABINE\TENOFOVIR [Suspect]
     Active Substance: EMTRICITABINE\TENOFOVIR
     Indication: HIV infection
  4. RALTEGRAVIR [Suspect]
     Active Substance: RALTEGRAVIR
     Indication: Acquired immunodeficiency syndrome
     Dosage: UNK
     Route: 065
  5. NIVOLUMAB [Suspect]
     Active Substance: NIVOLUMAB
     Indication: Hodgkin^s disease
     Dosage: UNK
     Route: 065
  6. NIVOLUMAB [Suspect]
     Active Substance: NIVOLUMAB
     Indication: Epstein-Barr virus associated lymphoma
     Dosage: 3 MILLIGRAM/KILOGRAM EVERY 2 WEEKS
     Route: 065
  7. CISPLATIN [Concomitant]
     Active Substance: CISPLATIN
     Indication: Epstein-Barr virus associated lymphoma
     Dosage: UNK
     Route: 065
  8. CISPLATIN [Concomitant]
     Active Substance: CISPLATIN
     Indication: Metastatic lymphoma
     Dosage: UNK
     Route: 065
  9. CISPLATIN [Concomitant]
     Active Substance: CISPLATIN
     Indication: Hodgkin^s disease
     Dosage: 3 COURSES
     Route: 065
  10. ADRIAMYCIN [Concomitant]
     Active Substance: DOXORUBICIN HYDROCHLORIDE
     Indication: Hodgkin^s disease
     Dosage: THREE CYCLES
     Route: 065
  11. ADRIAMYCIN [Concomitant]
     Active Substance: DOXORUBICIN HYDROCHLORIDE
     Indication: Epstein-Barr virus associated lymphoma
     Dosage: UNK
     Route: 065
  12. MELPHALAN [Concomitant]
     Active Substance: MELPHALAN
     Indication: Hodgkin^s disease
     Dosage: UNK
     Route: 065
     Dates: start: 201509
  13. MELPHALAN [Concomitant]
     Active Substance: MELPHALAN
     Indication: Epstein-Barr virus associated lymphoma
     Dosage: UNK
     Route: 065
  14. VINBLASTINE [Concomitant]
     Active Substance: VINBLASTINE
     Indication: Hodgkin^s disease
     Dosage: UNK
     Route: 065
  15. VINBLASTINE [Concomitant]
     Active Substance: VINBLASTINE
     Indication: Epstein-Barr virus associated lymphoma
     Dosage: UNK
     Route: 065
  16. BENDAMUSTINE [Concomitant]
     Active Substance: BENDAMUSTINE
     Indication: Epstein-Barr virus associated lymphoma
     Dosage: UNK
     Route: 065
  17. BENDAMUSTINE [Concomitant]
     Active Substance: BENDAMUSTINE
     Indication: Hodgkin^s disease
  18. PROCARBAZINE [Concomitant]
     Active Substance: PROCARBAZINE
     Indication: Epstein-Barr virus associated lymphoma
     Dosage: UNK
     Route: 065
  19. PROCARBAZINE [Concomitant]
     Active Substance: PROCARBAZINE
     Indication: Hodgkin^s disease
     Dosage: UNK, THREE CYCLES
     Route: 065
  20. CYTARABINE [Concomitant]
     Active Substance: CYTARABINE
     Indication: Metastatic lymphoma
     Dosage: UNK
     Route: 065
  21. CYTARABINE [Concomitant]
     Active Substance: CYTARABINE
     Indication: Epstein-Barr virus associated lymphoma
     Dosage: PART OF DHAP REGIMEN; 3 COURSES
     Route: 065
  22. CYTARABINE [Concomitant]
     Active Substance: CYTARABINE
     Indication: Hodgkin^s disease
     Dosage: PART OF FEAM CONDITIONING REGIMEN
     Route: 065
  23. VINORELBINE [Concomitant]
     Active Substance: VINORELBINE TARTRATE
     Indication: Epstein-Barr virus associated lymphoma
     Dosage: UNK
     Route: 065
  24. VINORELBINE [Concomitant]
     Active Substance: VINORELBINE TARTRATE
     Indication: Hodgkin^s disease
     Dosage: UNK
     Route: 065
  25. FOTEMUSTINE [Concomitant]
     Active Substance: FOTEMUSTINE
     Indication: Epstein-Barr virus associated lymphoma
     Dosage: UNK
     Route: 065
  26. FOTEMUSTINE [Concomitant]
     Active Substance: FOTEMUSTINE
     Indication: Hodgkin^s disease
     Dosage: UNK
     Route: 065
     Dates: start: 201509
  27. DACARBAZINE [Concomitant]
     Active Substance: DACARBAZINE
     Indication: Epstein-Barr virus associated lymphoma
     Dosage: UNK
     Route: 065
  28. DACARBAZINE [Concomitant]
     Active Substance: DACARBAZINE
     Indication: Hodgkin^s disease
     Dosage: UNK
     Route: 065
  29. BRENTUXIMAB VEDOTIN [Concomitant]
     Active Substance: BRENTUXIMAB VEDOTIN
     Indication: Metastatic lymphoma
     Dosage: UNK
     Route: 065
  30. BRENTUXIMAB VEDOTIN [Concomitant]
     Active Substance: BRENTUXIMAB VEDOTIN
     Indication: Epstein-Barr virus associated lymphoma
     Dosage: UNK
     Route: 065
  31. BRENTUXIMAB VEDOTIN [Concomitant]
     Active Substance: BRENTUXIMAB VEDOTIN
     Indication: Hodgkin^s disease
     Dosage: 8 COURSES
     Route: 065
  32. VINCRISTINE [Concomitant]
     Active Substance: VINCRISTINE
     Indication: Hodgkin^s disease
     Dosage: THREE CYCLES
     Route: 065
  33. VINCRISTINE [Concomitant]
     Active Substance: VINCRISTINE
     Indication: Epstein-Barr virus associated lymphoma
     Dosage: UNK
     Route: 065
  34. ETOPOSIDE [Concomitant]
     Active Substance: ETOPOSIDE
     Indication: Epstein-Barr virus associated lymphoma
     Dosage: PART OF FEAM CONDITIONING REGIMEN
     Route: 065
     Dates: start: 201509
  35. ETOPOSIDE [Concomitant]
     Active Substance: ETOPOSIDE
     Indication: Hodgkin^s disease
     Dosage: PART OF BEACOPP REGIMEN; THREE CYCLES
     Route: 065
  36. CYCLOPHOSPHAMIDE [Concomitant]
     Active Substance: CYCLOPHOSPHAMIDE
     Indication: Epstein-Barr virus associated lymphoma
     Dosage: UNK
     Route: 065
  37. CYCLOPHOSPHAMIDE [Concomitant]
     Active Substance: CYCLOPHOSPHAMIDE
     Indication: Hodgkin^s disease
     Dosage: THREE CYCLES
     Route: 065
  38. BLEOMYCIN [Concomitant]
     Active Substance: BLEOMYCIN SULFATE
     Indication: Hodgkin^s disease
     Dosage: PART OF ABD REGIMEN
     Route: 065
  39. BLEOMYCIN [Concomitant]
     Active Substance: BLEOMYCIN SULFATE
     Indication: Epstein-Barr virus associated lymphoma
     Dosage: PART OF BEACOPP REGIMEN; 3 CYCLES
     Route: 065
  40. GEMCITABINE [Concomitant]
     Active Substance: GEMCITABINE
     Indication: Hodgkin^s disease
     Dosage: UNK
     Route: 065
  41. GEMCITABINE [Concomitant]
     Active Substance: GEMCITABINE
     Indication: Epstein-Barr virus associated lymphoma
     Dosage: UNK
     Route: 065
  42. DEXAMETHASONE [Concomitant]
     Active Substance: DEXAMETHASONE
     Indication: Hodgkin^s disease
     Dosage: PART OF BEGEV REGIMEN
     Route: 065
  43. DEXAMETHASONE [Concomitant]
     Active Substance: DEXAMETHASONE
     Indication: Metastatic lymphoma
     Dosage: PART OF DHAP REGIMEN; 3 COURSES
     Route: 065
  44. DEXAMETHASONE [Concomitant]
     Active Substance: DEXAMETHASONE
     Indication: Epstein-Barr virus associated lymphoma
     Dosage: UNK
     Route: 065
  45. DOXORUBICIN [Concomitant]
     Active Substance: DOXORUBICIN
     Indication: Hodgkin^s disease
     Dosage: UNK
     Route: 065
  46. DOXORUBICIN [Concomitant]
     Active Substance: DOXORUBICIN
     Indication: Epstein-Barr virus associated lymphoma
     Dosage: UNK
     Route: 065
  47. PREDNISONE [Concomitant]
     Active Substance: PREDNISONE
     Indication: Epstein-Barr virus associated lymphoma
     Dosage: UNK
     Route: 065
  48. PREDNISONE [Concomitant]
     Active Substance: PREDNISONE
     Indication: Hodgkin^s disease
     Dosage: THREE CYCLES
     Route: 065
  49. PREDNISONE [Concomitant]
     Active Substance: PREDNISONE
     Dosage: UNK
     Route: 065

REACTIONS (2)
  - Neuropathy peripheral [Unknown]
  - Thrombocytopenia [Recovered/Resolved]
